FAERS Safety Report 5424938-1 (Version None)
Quarter: 2007Q3

REPORT INFORMATION
  Report Type: 
  Country: None (occurrence: None)
  Receive Date: 20070824
  Receipt Date: 20070816
  Transmission Date: 20080115
  Serious: Yes (Life-Threatening, Hospitalization, Other)
  Sender: FDA-Public Use
  Company Number: A0662182A

PATIENT
  Age: 47 Year
  Sex: Female

DRUGS (3)
  1. LAMICTAL [Suspect]
     Indication: BIPOLAR DISORDER
     Route: 048
     Dates: start: 20070601, end: 20070701
  2. REVLIMID [Concomitant]
  3. CONCURRENT MEDICATIONS [Concomitant]

REACTIONS (20)
  - AURICULAR SWELLING [None]
  - BLISTER [None]
  - BURNS THIRD DEGREE [None]
  - CANDIDIASIS [None]
  - CHAPPED LIPS [None]
  - ERYTHEMA [None]
  - EYE DISCHARGE [None]
  - EYE SWELLING [None]
  - HYPOVENTILATION [None]
  - LIP DRY [None]
  - LIP SWELLING [None]
  - LYMPHADENOPATHY [None]
  - OPEN WOUND [None]
  - PHARYNGEAL OEDEMA [None]
  - PYREXIA [None]
  - RASH [None]
  - SKIN LESION [None]
  - SWELLING [None]
  - SWELLING FACE [None]
  - URTICARIA [None]
